FAERS Safety Report 23260545 (Version 1)
Quarter: 2023Q4

REPORT INFORMATION
  Report Type: Spontaneous
  Country: US (occurrence: US)
  Receive Date: 20231205
  Receipt Date: 20231205
  Transmission Date: 20240110
  Serious: No
  Sender: FDA-Public Use
  Company Number: US-ABBVIE-5519769

PATIENT

DRUGS (4)
  1. BOTOX [Suspect]
     Active Substance: ONABOTULINUMTOXINA
     Indication: Skin wrinkling
     Dosage: TIME INTERVAL: AS NECESSARY
     Route: 065
  2. JUVEDERM VOLUMA XC [Concomitant]
     Active Substance: HYALURONIC ACID\LIDOCAINE HYDROCHLORIDE
     Indication: Product used for unknown indication
     Route: 065
  3. HYALURONIC ACID\LIDOCAINE HYDROCHLORIDE [Concomitant]
     Active Substance: HYALURONIC ACID\LIDOCAINE HYDROCHLORIDE
     Indication: Product used for unknown indication
     Dosage: XC
     Route: 065
  4. JUVEDERM [Concomitant]
     Active Substance: HYALURONIC ACID
     Indication: Product used for unknown indication
     Dosage: VOLLURE XC
     Route: 065

REACTIONS (1)
  - Product use in unapproved indication [Unknown]
